FAERS Safety Report 5580565-7 (Version None)
Quarter: 2008Q1

REPORT INFORMATION
  Report Type: 
  Country: None (occurrence: None)
  Receive Date: 20080103
  Receipt Date: 20071227
  Transmission Date: 20080703
  Serious: Yes (Life-Threatening)
  Sender: FDA-Public Use
  Company Number: US-BAXTER-2007BH010114

PATIENT

DRUGS (1)
  1. MORPHINE SULFATE [Suspect]
     Indication: PROCEDURAL PAIN
     Dosage: DOSE UNIT:UNKNOWN
     Route: 065
     Dates: start: 20070101, end: 20071201

REACTIONS (1)
  - CARDIAC ARREST [None]
